FAERS Safety Report 6582232-X (Version None)
Quarter: 2010Q1

REPORT INFORMATION
  Report Type: 
  Country: None (occurrence: None)
  Receive Date: 20100203
  Receipt Date: 20100119
  Transmission Date: 20100710
  Serious: Yes (Life-Threatening, Hospitalization)
  Sender: FDA-Public Use
  Company Number: 2009BM000141

PATIENT
  Age: 7 Year
  Sex: Female
  Weight: 16.3 kg

DRUGS (4)
  1. NAGLAZYME [Suspect]
     Indication: MUCOPOLYSACCHARIDOSIS VI
     Dosage: 4 VIALS; QW; IVDRP
     Route: 042
     Dates: start: 20090409, end: 20090601
  2. NAGLAZYME [Suspect]
     Indication: MUCOPOLYSACCHARIDOSIS VI
     Dosage: 4 VIALS; QW; IVDRP
     Route: 042
     Dates: start: 20090717
  3. ZYRTEC [Concomitant]
  4. PARACETAMOL [Concomitant]

REACTIONS (5)
  - H1N1 INFLUENZA [None]
  - HYPOXIA [None]
  - OBSTRUCTIVE AIRWAYS DISORDER [None]
  - PAIN [None]
  - PNEUMONIA [None]
